FAERS Safety Report 15880274 (Version 1)
Quarter: 2019Q1

REPORT INFORMATION
  Report Type: Spontaneous
  Country: US (occurrence: US)
  Receive Date: 20190128
  Receipt Date: 20190128
  Transmission Date: 20190417
  Serious: Yes (Other)
  Sender: FDA-Public Use
  Company Number: None

PATIENT
  Age: 61 Year
  Sex: Female
  Weight: 95.2 kg

DRUGS (1)
  1. VANCOMYCIN HCL IN DEXTROSE 5% [Suspect]
     Active Substance: VANCOMYCIN HYDROCHLORIDE

REACTIONS (4)
  - Infusion related reaction [None]
  - Erythema [None]
  - Pruritus generalised [None]
  - Throat irritation [None]
